FAERS Safety Report 9586959 (Version 1)
Quarter: 2013Q4

REPORT INFORMATION
  Report Type: Spontaneous
  Country: US (occurrence: US)
  Receive Date: 20131003
  Receipt Date: 20131003
  Transmission Date: 20140711
  Serious: Yes (Other)
  Sender: FDA-Public Use
  Company Number: US-ROCHE-1282299

PATIENT
  Sex: Female

DRUGS (13)
  1. XOLAIR [Suspect]
     Indication: SEASONAL ALLERGY
     Route: 065
  2. XOLAIR [Suspect]
     Route: 065
  3. XOLAIR [Suspect]
     Route: 065
  4. POTASSIUM CHLORIDE [Suspect]
     Indication: PRODUCT USED FOR UNKNOWN INDICATION
     Route: 065
  5. TOPIRAMATE [Suspect]
     Indication: PRODUCT USED FOR UNKNOWN INDICATION
     Route: 065
  6. BUTALBITAL [Suspect]
     Indication: PRODUCT USED FOR UNKNOWN INDICATION
     Route: 065
  7. BUTALBITAL [Suspect]
     Route: 065
  8. BUTALBITAL [Suspect]
     Route: 065
  9. BUTALBITAL [Suspect]
     Route: 065
  10. ZANTAC [Suspect]
     Indication: PRODUCT USED FOR UNKNOWN INDICATION
     Route: 065
  11. ZETIA [Suspect]
     Indication: PRODUCT USED FOR UNKNOWN INDICATION
     Route: 065
  12. B COMPLEX [Concomitant]
  13. ASPIRIN [Concomitant]

REACTIONS (9)
  - Arrhythmia [Unknown]
  - Throat tightness [Unknown]
  - Hyperhidrosis [Unknown]
  - Dysphagia [Unknown]
  - Oropharyngeal pain [Unknown]
  - Blood pressure decreased [Unknown]
  - Hypersensitivity [Unknown]
  - Headache [Unknown]
  - Nausea [Unknown]
